FAERS Safety Report 7149204-8 (Version None)
Quarter: 2010Q4

REPORT INFORMATION
  Report Type: 
  Country: None (occurrence: None)
  Receive Date: 20101209
  Receipt Date: 20101202
  Transmission Date: 20110411
  Serious: Yes (Death, Hospitalization)
  Sender: FDA-Public Use
  Company Number: FR-CEPHALON-2010006368

PATIENT
  Sex: Male

DRUGS (1)
  1. TREANDA [Suspect]
     Indication: MULTIPLE MYELOMA
     Route: 042
     Dates: start: 20100513, end: 20100705

REACTIONS (9)
  - ASTHENIA [None]
  - CONFUSIONAL STATE [None]
  - COUGH [None]
  - DEATH [None]
  - GENERAL PHYSICAL HEALTH DETERIORATION [None]
  - HYPERTHERMIA [None]
  - LUNG DISORDER [None]
  - SOMNOLENCE [None]
  - THROMBOCYTOPENIA [None]
